FAERS Safety Report 8552796-5 (Version None)
Quarter: 2012Q3

REPORT INFORMATION
  Report Type: 
  Country: None (occurrence: None)
  Receive Date: 20120731
  Receipt Date: 20120727
  Transmission Date: 20120928
  Serious: No
  Sender: FDA-Public Use
  Company Number: US-PFIZER INC-2012118379

PATIENT
  Sex: Female
  Weight: 112 kg

DRUGS (6)
  1. EFFEXOR XR [Suspect]
     Indication: ANXIETY
     Dosage: 150 MG, 1X/DAY
     Route: 048
  2. ZANTAC [Concomitant]
     Dosage: UNK
  3. EFFEXOR XR [Suspect]
     Dosage: 150 MG, UNK
     Route: 048
  4. SINGULAIR [Concomitant]
     Dosage: UNK
  5. PREMARIN [Concomitant]
     Dosage: UNK
  6. SYNTHROID [Concomitant]
     Dosage: UNK

REACTIONS (5)
  - BLOOD TEST ABNORMAL [None]
  - PRODUCT PHYSICAL ISSUE [None]
  - MALAISE [None]
  - POOR QUALITY DRUG ADMINISTERED [None]
  - DIARRHOEA [None]
